FAERS Safety Report 18424347 (Version 3)
Quarter: 2021Q2

REPORT INFORMATION
  Report Type: Spontaneous
  Country: US (occurrence: US)
  Receive Date: 20201026
  Receipt Date: 20210504
  Transmission Date: 20210717
  Serious: Yes (Other)
  Sender: FDA-Public Use
  Company Number: US-ROCHE-2699651

PATIENT
  Age: 68 Year
  Sex: Female
  Weight: 68.1 kg

DRUGS (3)
  1. ETOPOSIDE. [Concomitant]
     Active Substance: ETOPOSIDE
     Indication: NON-SMALL CELL LUNG CANCER METASTATIC
     Dosage: 12 SETS OF TREATMENT
     Route: 042
     Dates: start: 202002
  2. CARBOPLATIN. [Concomitant]
     Active Substance: CARBOPLATIN
     Indication: NON-SMALL CELL LUNG CANCER METASTATIC
     Dosage: 12 SETS OF TREATMENT
     Route: 042
     Dates: start: 202002
  3. TECENTRIQ [Suspect]
     Active Substance: ATEZOLIZUMAB
     Indication: NON-SMALL CELL LUNG CANCER METASTATIC
     Route: 042
     Dates: start: 20200310

REACTIONS (7)
  - Loss of consciousness [Recovered/Resolved]
  - Fatigue [Not Recovered/Not Resolved]
  - Dysgeusia [Unknown]
  - Gait disturbance [Unknown]
  - Fall [Unknown]
  - Memory impairment [Not Recovered/Not Resolved]
  - Gait disturbance [Not Recovered/Not Resolved]

NARRATIVE: CASE EVENT DATE: 20200412
